FAERS Safety Report 11668205 (Version 1)
Quarter: 2015Q4

REPORT INFORMATION
  Report Type: Spontaneous
  Country: ES (occurrence: ES)
  Receive Date: 20151027
  Receipt Date: 20151027
  Transmission Date: 20160304
  Serious: Yes (Other)
  Sender: FDA-Public Use
  Company Number: ES-TEVA-602580ISR

PATIENT
  Age: 36 Year
  Sex: Female

DRUGS (1)
  1. DRETINELLE 0.02 MG/3MG COMPRIMIDOS RECUBIERTOS CON PELICULA EFG, 63 (3 [Suspect]
     Active Substance: DROSPIRENONE\ETHINYL ESTRADIOL
     Route: 048
     Dates: start: 20150910, end: 20150910

REACTIONS (2)
  - Pruritus [Recovered/Resolved]
  - Dysphagia [Recovered/Resolved]

NARRATIVE: CASE EVENT DATE: 20150910
